FAERS Safety Report 4277646-7 (Version None)
Quarter: 2004Q1

REPORT INFORMATION
  Report Type: 
  Country: None (occurrence: None)
  Receive Date: 20040121
  Receipt Date: 20040115
  Transmission Date: 20041129
  Serious: Yes (Death)
  Sender: FDA-Public Use
  Company Number: US-JNJFOC-20031202385

PATIENT
  Age: 39 Year
  Sex: Male

DRUGS (4)
  1. DURAGESIC [Suspect]
     Indication: PAIN
     Dosage: 50 UG/HR, 1 IN 72 HOUR, TRANSDERMAL
     Route: 062
     Dates: start: 20030520, end: 20030521
  2. CELEBREX [Concomitant]
  3. DARVOCET-N (PROPACET) [Concomitant]
  4. PERCOCET [Concomitant]

REACTIONS (1)
  - OVERDOSE [None]
